FAERS Safety Report 5710872-6 (Version None)
Quarter: 2008Q2

REPORT INFORMATION
  Report Type: 
  Country: None (occurrence: None)
  Receive Date: 20080421
  Receipt Date: 20080414
  Transmission Date: 20081010
  Serious: Yes (Hospitalization, Other)
  Sender: FDA-Public Use
  Company Number: PHNU2008DE01556

PATIENT
  Age: 64 Year
  Sex: Male

DRUGS (6)
  1. DILTAHEXAL [Concomitant]
  2. DIOVAN HCT [Concomitant]
  3. CLONIDINE HCL [Concomitant]
  4. TORSEMIDE [Concomitant]
  5. RASILEZ [Suspect]
     Indication: HYPERTENSION
     Dosage: UNK, UNK
     Dates: start: 20080205
  6. RASILEZ [Suspect]
     Dates: start: 20071220, end: 20080101

REACTIONS (4)
  - ALANINE AMINOTRANSFERASE INCREASED [None]
  - ASPARTATE AMINOTRANSFERASE INCREASED [None]
  - GAMMA-GLUTAMYLTRANSFERASE INCREASED [None]
  - HOSPITALISATION [None]
